FAERS Safety Report 13564875 (Version 1)
Quarter: 2017Q2

REPORT INFORMATION
  Report Type: Spontaneous
  Country: SA (occurrence: SA)
  Receive Date: 20170519
  Receipt Date: 20170519
  Transmission Date: 20170830
  Serious: Yes (Life-Threatening, Other)
  Sender: FDA-Public Use
  Company Number: SA-GLAXOSMITHKLINE-SA2017073954

PATIENT
  Age: 55 Year
  Sex: Female

DRUGS (9)
  1. LEVETIRACETAM. [Concomitant]
     Active Substance: LEVETIRACETAM
  2. NOREPINEPHRINE. [Concomitant]
     Active Substance: NOREPINEPHRINE
     Dosage: UP TO 7 MCG
  3. LACOSAMIDE. [Concomitant]
     Active Substance: LACOSAMIDE
  4. VANCOMYCIN [Concomitant]
     Active Substance: VANCOMYCIN
  5. COLISTIN [Concomitant]
     Active Substance: COLISTIN
  6. PHENYTOIN. [Concomitant]
     Active Substance: PHENYTOIN
     Dosage: MAINTENANCE DOSE
  7. MEROPENEM. [Concomitant]
     Active Substance: MEROPENEM
  8. ANIDULAFUNGIN [Concomitant]
     Active Substance: ANIDULAFUNGIN
  9. ACICLOVIR [Suspect]
     Active Substance: ACYCLOVIR
     Indication: HERPES SIMPLEX ENCEPHALITIS
     Route: 042

REACTIONS (1)
  - Drug ineffective [Not Recovered/Not Resolved]
